FAERS Safety Report 8172919-X (Version None)
Quarter: 2012Q1

REPORT INFORMATION
  Report Type: 
  Country: None (occurrence: None)
  Receive Date: 20120223
  Receipt Date: 20120215
  Transmission Date: 20120608
  Serious: Yes (Hospitalization, Other)
  Sender: FDA-Public Use
  Company Number: ACO_27090_2011

PATIENT
  Age: 35 Year
  Sex: Male
  Weight: 72.6 kg

DRUGS (5)
  1. OXYBUTYNIN [Concomitant]
  2. BACLOFEN [Concomitant]
  3. AMPYRA [Suspect]
     Indication: GAIT DISTURBANCE
     Dosage: 10 MG, BID, ORAL
     Route: 048
     Dates: start: 20111001, end: 20111001
  4. GILENYA [Suspect]
     Indication: MULTIPLE SCLEROSIS
     Dosage: 0.5 MG, QD, ORAL
     Route: 048
     Dates: start: 20111001, end: 20111001
  5. GABAPENTIN [Concomitant]

REACTIONS (1)
  - CONVULSION [None]
